FAERS Safety Report 14723360 (Version 5)
Quarter: 2018Q2

REPORT INFORMATION
  Report Type: Spontaneous
  Country: PT (occurrence: PT)
  Receive Date: 20180405
  Receipt Date: 20180621
  Transmission Date: 20180711
  Serious: Yes (Other)
  Sender: FDA-Public Use
  Company Number: IND-PT-009507513-1801PRT008284

PATIENT
  Age: 49 Year
  Sex: Female

DRUGS (2)
  1. ETORICOXIB [Suspect]
     Active Substance: ETORICOXIB
     Indication: ARTHRALGIA
     Dosage: 90 MG, UNK
     Route: 048
  2. ETORICOXIB [Suspect]
     Active Substance: ETORICOXIB
     Dosage: CUMULATIVE DOSE OF 120 MG
     Route: 048

REACTIONS (1)
  - Anaphylactic reaction [Recovered/Resolved]
